FAERS Safety Report 11108467 (Version 1)
Quarter: 2015Q2

REPORT INFORMATION
  Report Type: Spontaneous
  Country: JP (occurrence: JP)
  Receive Date: 20150513
  Receipt Date: 20150513
  Transmission Date: 20150821
  Serious: Yes (Other)
  Sender: FDA-Public Use
  Company Number: JP-CIPLA LTD.-2015JP03639

PATIENT

DRUGS (2)
  1. CAPEGARD [Suspect]
     Active Substance: CAPECITABINE
     Indication: BREAST CANCER METASTATIC
     Dosage: 1,657 MG/M2/DAY FOR 21 CONSECUTIVE DAYS, FOLLOWED BY 7 DAYS OF REST REPEATED EVERY 28 DAYS
     Route: 065
  2. IRINOTECAN [Suspect]
     Active Substance: IRINOTECAN
     Indication: BREAST CANCER METASTATIC
     Dosage: 90 MG/M2, AS A 30-MIN INTRAVENOUS INFUSION ON DAYS 1 AND 15 OF EACH CYCLE REPEATED EVERY 28 DAYS

REACTIONS (1)
  - Disease progression [Unknown]
